FAERS Safety Report 5403660-1 (Version None)
Quarter: 2007Q3

REPORT INFORMATION
  Report Type: 
  Country: None (occurrence: None)
  Receive Date: 20070802
  Receipt Date: 20070726
  Transmission Date: 20080115
  Serious: Yes (Hospitalization, Other)
  Sender: FDA-Public Use
  Company Number: PHBS2007JP11333

PATIENT
  Age: 66 Year
  Sex: Male
  Weight: 49 kg

DRUGS (11)
  1. ZOMETA [Suspect]
     Indication: METASTASES TO BONE
     Dosage: 4 MG, QMO
     Route: 042
     Dates: start: 20070206
  2. ESTRACYT [Suspect]
     Indication: PROSTATE CANCER
     Dosage: 313.4 MG, UNK
     Route: 048
     Dates: start: 20070525
  3. ETOPOSIDE [Concomitant]
     Indication: PROSTATE CANCER
     Dosage: 50 MG, UNK
     Route: 048
     Dates: start: 20070525
  4. DECADRON [Concomitant]
     Indication: PROSTATE CANCER
     Dosage: 0.5 MG, UNK
     Route: 048
     Dates: start: 20070407
  5. ASPARA-CA [Concomitant]
     Indication: HYPOCALCAEMIA
     Dosage: 2400 MG, UNK
     Route: 048
     Dates: start: 20070209
  6. ROCALTROL [Concomitant]
     Indication: HYPOGLYCAEMIA
     Dosage: 0.5 UG, UNK
     Route: 048
     Dates: start: 20070209
  7. DEPAS [Concomitant]
     Indication: ANXIETY DISORDER
     Dosage: 1 MG, UNK
     Route: 048
     Dates: start: 20060826
  8. HARNAL [Concomitant]
     Indication: DYSURIA
     Dosage: 0.2 MG, UNK
     Route: 048
     Dates: start: 20060820
  9. LOXONIN [Concomitant]
     Dosage: 180 MG, UNK
     Route: 048
     Dates: start: 20070511
  10. OXYCONTIN [Concomitant]
     Dosage: 10 MG, UNK
     Route: 048
     Dates: start: 20070608
  11. ODYNE [Concomitant]

REACTIONS (12)
  - ANAEMIA [None]
  - BLOOD ALKALINE PHOSPHATASE INCREASED [None]
  - CARDIAC FAILURE CONGESTIVE [None]
  - DRUG INTERACTION [None]
  - DYSPNOEA EXERTIONAL [None]
  - HAEMATOCRIT INCREASED [None]
  - HAEMOGLOBIN DECREASED [None]
  - HYPOCALCAEMIA [None]
  - PALPITATIONS [None]
  - PLEURAL EFFUSION [None]
  - PROSTATIC SPECIFIC ANTIGEN INCREASED [None]
  - RED BLOOD CELL COUNT DECREASED [None]
